FAERS Safety Report 17549613 (Version 1)
Quarter: 2020Q1

REPORT INFORMATION
  Report Type: Spontaneous
  Country: US (occurrence: US)
  Receive Date: 20200316
  Receipt Date: 20200316
  Transmission Date: 20200409
  Serious: No
  Sender: FDA-Public Use
  Company Number: None

PATIENT
  Age: 71 Year

DRUGS (1)
  1. ABRAXANE [Suspect]
     Active Substance: PACLITAXEL
     Indication: PANCREATIC CARCINOMA
     Dosage: ?          OTHER DOSE:100MG/M2(200MG) OR;OTHER FREQUENCY:OTHER;?
     Route: 042
     Dates: start: 202003

REACTIONS (1)
  - Off label use [None]

NARRATIVE: CASE EVENT DATE: 20200311
